FAERS Safety Report 18844410 (Version 1)
Quarter: 2021Q1

REPORT INFORMATION
  Report Type: Report from Study
  Country: US (occurrence: US)
  Receive Date: 20210203
  Receipt Date: 20210203
  Transmission Date: 20210419
  Serious: No
  Sender: FDA-Public Use
  Company Number: US-EXELIXIS-CABO-20028421

PATIENT
  Age: 71 Year
  Sex: Male

DRUGS (2)
  1. CABOMETYX [Suspect]
     Active Substance: CABOZANTINIB S-MALATE
     Dosage: 40 MG, QD
     Route: 048
     Dates: start: 20200325
  2. CABOMETYX [Suspect]
     Active Substance: CABOZANTINIB S-MALATE
     Indication: HEPATOCELLULAR CARCINOMA
     Dosage: 60 MG, QD

REACTIONS (13)
  - Tooth disorder [Recovered/Resolved]
  - Blood glucose increased [Recovered/Resolved]
  - Pain in extremity [Recovered/Resolved]
  - Blood potassium increased [Recovered/Resolved]
  - Ageusia [Recovered/Resolved]
  - White blood cell count increased [Recovered/Resolved]
  - Blood potassium decreased [Recovered/Resolved]
  - Infection [Unknown]
  - Diarrhoea [Recovered/Resolved]
  - Stomatitis [Recovered/Resolved]
  - Fatigue [Recovered/Resolved]
  - Palmar-plantar erythrodysaesthesia syndrome [Recovered/Resolved]
  - Blood pressure increased [Recovered/Resolved]

NARRATIVE: CASE EVENT DATE: 20200311
